FAERS Safety Report 6755390-1 (Version None)
Quarter: 2010Q2

REPORT INFORMATION
  Report Type: 
  Country: None (occurrence: None)
  Receive Date: 20100604
  Receipt Date: 20100524
  Transmission Date: 20101027
  Serious: Yes (Hospitalization)
  Sender: FDA-Public Use
  Company Number: ES-PFIZER INC-2010065215

PATIENT
  Age: 65 Year
  Sex: Female

DRUGS (4)
  1. ZYVOXID [Suspect]
     Indication: INFECTION
     Dosage: 600 MG, 2X/DAY
     Route: 048
     Dates: start: 20100426, end: 20100428
  2. MERONEM [Suspect]
     Indication: INFECTION
     Dosage: 3 G/DAY
     Route: 042
     Dates: start: 20100427, end: 20100428
  3. ENOXAPARIN SODIUM [Concomitant]
     Indication: ANTICOAGULANT THERAPY
     Dosage: 40 MG, 1X/DAY
     Route: 051
     Dates: start: 20100420, end: 20100422
  4. NOLOTIL /SPA/ [Concomitant]
     Indication: PAIN
     Dosage: 2 G/DAY, AS NEEDED
     Route: 042
     Dates: start: 20100426, end: 20100428

REACTIONS (2)
  - CEREBRAL HAEMORRHAGE [None]
  - THROMBOCYTOPENIA [None]
